FAERS Safety Report 13475918 (Version 2)
Quarter: 2017Q2

REPORT INFORMATION
  Report Type: Spontaneous
  Country: US (occurrence: US)
  Receive Date: 20170424
  Receipt Date: 20170503
  Transmission Date: 20170830
  Serious: No
  Sender: FDA-Public Use
  Company Number: US-ACTELION-A-US2017-152899

PATIENT
  Age: 55 Year
  Sex: Male

DRUGS (6)
  1. UPTRAVI [Suspect]
     Active Substance: SELEXIPAG
     Dosage: 200 MCG, BID
     Route: 048
  2. ADCIRCA [Concomitant]
     Active Substance: TADALAFIL
  3. UPTRAVI [Suspect]
     Active Substance: SELEXIPAG
     Dosage: 200 MCG, QD
     Route: 048
  4. OPSUMIT [Concomitant]
     Active Substance: MACITENTAN
     Indication: PULMONARY ARTERIAL HYPERTENSION
  5. UPTRAVI [Suspect]
     Active Substance: SELEXIPAG
     Indication: PULMONARY ARTERIAL HYPERTENSION
     Dosage: 400 MCG, BID
     Route: 048
  6. LETAIRIS [Concomitant]
     Active Substance: AMBRISENTAN

REACTIONS (6)
  - Paraesthesia [Unknown]
  - Epistaxis [Unknown]
  - Hypoaesthesia [Unknown]
  - Pain in jaw [Unknown]
  - Pain in extremity [Unknown]
  - Vision blurred [Unknown]

NARRATIVE: CASE EVENT DATE: 20170416
